FAERS Safety Report 8805970 (Version 1)
Quarter: 2012Q4

REPORT INFORMATION
  Report Type: Spontaneous
  Country: US (occurrence: None)
  Receive Date: 20120919
  Receipt Date: 20120919
  Transmission Date: 20130627
  Serious: Yes (Life-Threatening, Hospitalization)
  Sender: FDA-Public Use
  Company Number: None

PATIENT
  Age: 27 Year
  Sex: Female
  Weight: 90.72 kg

DRUGS (1)
  1. NITROFURANTOIN [Suspect]
     Dosage: Nitrofurantoin po
     Route: 048

REACTIONS (11)
  - No therapeutic response [None]
  - Back pain [None]
  - Malaise [None]
  - Pyrexia [None]
  - Paraesthesia [None]
  - Sensation of pressure [None]
  - Painful respiration [None]
  - Chest pain [None]
  - Pain [None]
  - Hypersensitivity [None]
  - Musculoskeletal discomfort [None]
